FAERS Safety Report 13412155 (Version 2)
Quarter: 2017Q4

REPORT INFORMATION
  Report Type: Spontaneous
  Country: US (occurrence: US)
  Receive Date: 20170406
  Receipt Date: 20171121
  Transmission Date: 20180320
  Serious: No
  Sender: FDA-Public Use
  Company Number: US-JNJFOC-20170314128

PATIENT
  Sex: Male

DRUGS (4)
  1. INVEGA [Suspect]
     Active Substance: PALIPERIDONE
     Indication: SCHIZOPHRENIA
     Route: 048
     Dates: end: 20150616
  2. RISPERDAL [Suspect]
     Active Substance: RISPERIDONE
     Indication: SCHIZOPHRENIA
     Dosage: IN VARYING DOSES OF 2 MG, 3 MG AND 4 MG
     Route: 048
     Dates: start: 20060807, end: 20070226
  3. INVEGA [Suspect]
     Active Substance: PALIPERIDONE
     Indication: SCHIZOPHRENIA
     Dosage: IN VARYING DOSES OF 3 MG, 6 MG, 9 MG AND 12 MG
     Route: 048
     Dates: start: 20070228, end: 20130128
  4. INVEGA SUSTENNA [Suspect]
     Active Substance: PALIPERIDONE PALMITATE
     Indication: SCHIZOPHRENIA
     Dosage: IN VARYING DOSES OF 78 MG AND 234 MG
     Route: 030
     Dates: start: 20130912, end: 20150616

REACTIONS (2)
  - Gynaecomastia [Unknown]
  - Emotional disorder [Unknown]
